FAERS Safety Report 6178070-2 (Version None)
Quarter: 2009Q2

REPORT INFORMATION
  Report Type: 
  Country: None (occurrence: None)
  Receive Date: 20090501
  Receipt Date: 20090501
  Transmission Date: 20091009
  Serious: Yes (Other)
  Sender: FDA-Public Use
  Company Number: None

PATIENT
  Age: 50 Year
  Sex: Female
  Weight: 113.3993 kg

DRUGS (2)
  1. THERAFLU FLU + CHEST CONGESTION NOVARTIS LOT #J0054595 EXP [Suspect]
     Indication: NASOPHARYNGITIS
     Dosage: 1 PACKET EVERY 6 HOURS PO, SMELL AND 1/2 A SIP
     Route: 048
     Dates: start: 20090217, end: 20090217
  2. THERAFLU FLU + SORE THROAT APPLE CINNAMON NOVARTIS LOT # 10057499 EXP [Suspect]
     Indication: NASOPHARYNGITIS
     Dosage: 1 PACKET EVERY 4 HOURS PO, SMELL AND 1/2 A SIP
     Route: 048
     Dates: start: 20090217, end: 20090217

REACTIONS (2)
  - HEADACHE [None]
  - PRODUCT LABEL ON WRONG PRODUCT [None]
